FAERS Safety Report 24880461 (Version 2)
Quarter: 2025Q1

REPORT INFORMATION
  Report Type: Spontaneous
  Country: KR (occurrence: KR)
  Receive Date: 20250123
  Receipt Date: 20250129
  Transmission Date: 20250409
  Serious: Yes (Death, Hospitalization)
  Sender: SAMSUNG BIOEPIS
  Company Number: KR-SAMSUNG BIOEPIS-SB-2025-02137

PATIENT
  Age: 73 Year
  Sex: Male
  Weight: 74 kg

DRUGS (17)
  1. TRASTUZUMAB [Suspect]
     Active Substance: TRASTUZUMAB
     Indication: Gallbladder cancer
     Route: 042
     Dates: start: 20250106, end: 20250113
  2. TRASTUZUMAB [Suspect]
     Active Substance: TRASTUZUMAB
     Route: 042
     Dates: start: 20250106, end: 20250113
  3. OPDIVO [Suspect]
     Active Substance: NIVOLUMAB
     Indication: Gallbladder cancer
     Route: 042
     Dates: start: 20250106, end: 20250113
  4. GEMZAR [Suspect]
     Active Substance: GEMCITABINE HYDROCHLORIDE
     Indication: Gallbladder cancer
     Route: 042
     Dates: start: 20250106, end: 20250113
  5. CISPLATIN [Suspect]
     Active Substance: CISPLATIN
     Indication: Gallbladder cancer
     Route: 042
     Dates: start: 20250106, end: 20250113
  6. PERAMIVIR [Concomitant]
     Active Substance: PERAMIVIR
     Indication: Product used for unknown indication
     Route: 042
     Dates: start: 20250113, end: 20250114
  7. ETOMIDATE [Concomitant]
     Active Substance: ETOMIDATE
     Indication: Product used for unknown indication
     Route: 042
     Dates: start: 20250113, end: 20250115
  8. PRECEDEX [Concomitant]
     Active Substance: DEXMEDETOMIDINE HYDROCHLORIDE
     Indication: Product used for unknown indication
     Route: 042
     Dates: start: 20250113, end: 20250115
  9. NEXIUM [Concomitant]
     Active Substance: ESOMEPRAZOLE MAGNESIUM
     Indication: Prophylaxis
     Route: 042
     Dates: start: 20250113, end: 20250114
  10. KETAMINE [Concomitant]
     Active Substance: KETAMINE
     Indication: Product used for unknown indication
     Route: 042
     Dates: start: 20250113, end: 20250114
  11. ASCORBIC ACID [Concomitant]
     Active Substance: ASCORBIC ACID
     Indication: Prophylaxis
     Route: 042
     Dates: start: 20250113, end: 20250114
  12. SUFENTANIL CITRATE [Concomitant]
     Active Substance: SUFENTANIL CITRATE
     Indication: Prophylaxis
     Route: 042
     Dates: start: 20250113, end: 20250114
  13. Q PHRINE [Concomitant]
     Indication: Prophylaxis
     Dates: start: 20250113, end: 20250115
  14. ATROVENT [Concomitant]
     Active Substance: IPRATROPIUM BROMIDE
     Indication: Prophylaxis
     Dates: start: 20250113, end: 20250114
  15. PULMICORT TURBUHALER [Concomitant]
     Active Substance: BUDESONIDE
     Indication: Prophylaxis
     Dosage: RESPULE;
     Dates: start: 20250113, end: 20250114
  16. NEUPOGEN [Concomitant]
     Active Substance: FILGRASTIM
     Indication: Product used for unknown indication
     Dates: start: 20250113, end: 20250113
  17. METHYLPREDNISOLONE [Concomitant]
     Active Substance: METHYLPREDNISOLONE
     Indication: Product used for unknown indication
     Dates: start: 20250113, end: 20250114

REACTIONS (6)
  - Acute kidney injury [Fatal]
  - Septic shock [Fatal]
  - Pancytopenia [Fatal]
  - Respiratory failure [Fatal]
  - Cardiac arrest [Fatal]
  - Off label use [Unknown]

NARRATIVE: CASE EVENT DATE: 20250113
